FAERS Safety Report 11644641 (Version 2)
Quarter: 2016Q3

REPORT INFORMATION
  Report Type: Report from Study
  Country: PL (occurrence: PL)
  Receive Date: 20151020
  Receipt Date: 20160929
  Transmission Date: 20161109
  Serious: Yes (Life-Threatening, Hospitalization)
  Sender: FDA-Public Use
  Company Number: PL-ASTRAZENECA-2015SE51792

PATIENT
  Age: 23558 Day
  Sex: Male

DRUGS (17)
  1. ABIRATERONE [Suspect]
     Active Substance: ABIRATERONE
     Indication: PROSTATE CANCER METASTATIC
     Route: 048
     Dates: start: 20150506, end: 20150525
  2. ABIRATERONE [Suspect]
     Active Substance: ABIRATERONE
     Indication: PROSTATE CANCER METASTATIC
     Route: 048
     Dates: start: 20150601
  3. ASPIRIN. [Concomitant]
     Active Substance: ASPIRIN
     Indication: BONE PAIN
     Route: 048
  4. FENOFIBRATUM [Concomitant]
     Indication: HYPERLIPIDAEMIA
     Route: 048
  5. KATELIN SR [Concomitant]
     Indication: MINERAL SUPPLEMENTATION
     Dosage: 2 CAPSULES DAILY
     Route: 048
  6. ZOLEDRONIC ACID ACTAVIS [Concomitant]
     Active Substance: ZOLEDRONIC ACID
     Indication: METASTASES TO BONE
     Route: 042
  7. ZOLEDRONIC ACID ACTAVIS [Concomitant]
     Active Substance: ZOLEDRONIC ACID
     Indication: BONE PAIN
     Route: 042
  8. OLAPARIB [Suspect]
     Active Substance: OLAPARIB
     Indication: PROSTATE CANCER METASTATIC
     Route: 048
     Dates: start: 20150610
  9. VITRUM CALCIUM [Concomitant]
     Indication: MINERAL SUPPLEMENTATION
     Route: 048
  10. BISOPROLOLI FUMARAS [Concomitant]
     Indication: HYPERTENSION
     Route: 048
  11. PREDNISONE. [Suspect]
     Active Substance: PREDNISONE
     Indication: PROSTATE CANCER METASTATIC
     Route: 048
     Dates: start: 20150506
  12. CANDESARTANUM CILEXETILUM [Concomitant]
     Indication: HYPERTENSION
     Route: 048
  13. LERCANIDIPINI HYDROCHLORIDUM [Concomitant]
     Indication: HYPERTENSION
     Route: 048
  14. OLAPARIB [Suspect]
     Active Substance: OLAPARIB
     Indication: PROSTATE CANCER METASTATIC
     Route: 048
     Dates: start: 20150506, end: 20150525
  15. METFORMINI HYDROCHLORIDUM [Concomitant]
     Indication: DIABETES MELLITUS
     Route: 048
  16. TORASEMIDUM [Concomitant]
     Indication: HYPERTENSION
     Route: 048
  17. LEVOTHYROXINUM NATRICUM [Concomitant]
     Indication: HYPOTHYROIDISM
     Route: 048

REACTIONS (1)
  - Febrile neutropenia [Recovered/Resolved]

NARRATIVE: CASE EVENT DATE: 20150524
